FAERS Safety Report 24054332 (Version 1)
Quarter: 2024Q3

REPORT INFORMATION
  Report Type: Spontaneous
  Country: GB (occurrence: GB)
  Receive Date: 20240705
  Receipt Date: 20240705
  Transmission Date: 20241017
  Serious: Yes (Other)
  Sender: HIKMA
  Company Number: None

PATIENT

DRUGS (1)
  1. CIPROFLOXACIN [Suspect]
     Active Substance: CIPROFLOXACIN
     Indication: Prostatitis
     Dosage: UNKNOWN, BID
     Route: 065
     Dates: start: 20240614, end: 20240624

REACTIONS (4)
  - Medication error [Unknown]
  - Tendonitis [Not Recovered/Not Resolved]
  - Gait disturbance [Unknown]
  - Pain in extremity [Unknown]

NARRATIVE: CASE EVENT DATE: 20240623
